FAERS Safety Report 7897503-4 (Version None)
Quarter: 2011Q4

REPORT INFORMATION
  Report Type: 
  Country: None (occurrence: None)
  Receive Date: 20111107
  Receipt Date: 20111027
  Transmission Date: 20120403
  Serious: Yes (Other)
  Sender: FDA-Public Use
  Company Number: US-JNJFOC-20111012445

PATIENT
  Sex: Male
  Weight: 85.28 kg

DRUGS (8)
  1. EDURANT [Suspect]
     Indication: HIV INFECTION
     Route: 048
     Dates: start: 20111021
  2. MIRTAZAPINE [Concomitant]
     Indication: INSOMNIA
     Route: 048
     Dates: start: 20110915
  3. TRUVADA [Concomitant]
     Indication: HIV INFECTION
     Route: 048
     Dates: start: 20111021
  4. NORCO [Concomitant]
     Indication: BACK PAIN
     Dosage: 1-2 EVERY 8 HOURS AS NEEDED
     Route: 048
     Dates: start: 20111021
  5. TRAMADOL HCL [Concomitant]
     Indication: BACK PAIN
     Route: 048
     Dates: start: 20110624
  6. BACTRIM [Concomitant]
     Indication: HIV INFECTION
     Route: 048
     Dates: start: 20110622
  7. FERROUS SULFATE TAB [Concomitant]
     Indication: HIV INFECTION
     Route: 048
     Dates: start: 20111021
  8. FLUCONAZOLE [Concomitant]
     Indication: HIV INFECTION
     Route: 048
     Dates: start: 20110803

REACTIONS (2)
  - PANCREATITIS [None]
  - LIPASE INCREASED [None]
